FAERS Safety Report 24717030 (Version 1)
Quarter: 2024Q4

REPORT INFORMATION
  Report Type: Spontaneous
  Country: US (occurrence: None)
  Receive Date: 20241210
  Receipt Date: 20241210
  Transmission Date: 20250115
  Serious: No
  Sender: Public
  Company Number: None

PATIENT
  Age: 72 Year
  Sex: Female
  Weight: 90.72 kg

DRUGS (1)
  1. ODOMZO [Suspect]
     Active Substance: SONIDEGIB
     Indication: Basal cell carcinoma
     Dosage: OTHER QUANTITY : TAKE 1 CAPSULE;?FREQUENCY : DAILY;?
     Route: 048
     Dates: start: 202311

REACTIONS (1)
  - Illness [None]
